FAERS Safety Report 9387646 (Version 1)
Quarter: 2013Q3

REPORT INFORMATION
  Report Type: Spontaneous
  Country: DE (occurrence: DE)
  Receive Date: 20130708
  Receipt Date: 20130708
  Transmission Date: 20140515
  Serious: Yes (Hospitalization, Other)
  Sender: FDA-Public Use
  Company Number: DE-PFIZER INC-2013166021

PATIENT
  Age: 43 Year
  Sex: Male

DRUGS (2)
  1. PANTOZOL [Suspect]
     Dosage: 80 DF, SINGLE
     Route: 065
     Dates: start: 20130525, end: 20130525
  2. PANTOZOL [Suspect]
     Dosage: 20 MG, DAILY

REACTIONS (5)
  - Suicide attempt [Unknown]
  - Intentional overdose [Unknown]
  - Gamma-glutamyltransferase increased [Unknown]
  - Alanine aminotransferase increased [Unknown]
  - Aspartate aminotransferase increased [Unknown]
